FAERS Safety Report 4818344-8 (Version None)
Quarter: 2005Q4

REPORT INFORMATION
  Report Type: 
  Country: None (occurrence: None)
  Receive Date: 20051102
  Receipt Date: 20050406
  Transmission Date: 20060501
  Serious: Yes (Hospitalization)
  Sender: FDA-Public Use
  Company Number: 2005AP02187

PATIENT
  Age: 27085 Day
  Sex: Female
  Weight: 49 kg

DRUGS (4)
  1. ARIMIDEX [Suspect]
     Indication: BREAST CANCER
     Route: 048
     Dates: start: 20041228, end: 20050109
  2. NORVASC [Concomitant]
     Indication: HYPERTENSION
     Route: 048
     Dates: start: 20030101, end: 20050109
  3. GLIMICRON [Concomitant]
     Indication: DIABETES MELLITUS
     Route: 048
     Dates: start: 20040101, end: 20050109
  4. NOLVADEX [Concomitant]
     Indication: BREAST CANCER
     Dates: end: 20041228

REACTIONS (3)
  - COLON NEOPLASM [None]
  - ENTEROCOLITIS HAEMORRHAGIC [None]
  - LOSS OF CONSCIOUSNESS [None]
